FAERS Safety Report 9520367 (Version 3)
Quarter: 2014Q2

REPORT INFORMATION
  Report Type: Spontaneous
  Country: SE (occurrence: SE)
  Receive Date: 20130912
  Receipt Date: 20140514
  Transmission Date: 20141212
  Serious: Yes (Other)
  Sender: FDA-Public Use
  Company Number: SE-ROCHE-1272905

PATIENT
  Age: 57 Year
  Sex: Female

DRUGS (3)
  1. ROACTEMRA [Suspect]
     Indication: RHEUMATOID ARTHRITIS
     Route: 042
     Dates: end: 20120813
  2. ROACTEMRA [Suspect]
     Dosage: THERAPY START DATE: 11/JUN/2013  (NOT CAPTURED IN SCREEN DUE TO VALIDATION ERROR).
     Route: 042
  3. ORUDIS RETARD [Concomitant]
     Indication: PAIN
     Route: 048

REACTIONS (3)
  - Large intestinal ulcer [Unknown]
  - Gastrointestinal perforation [Unknown]
  - Abscess [Unknown]
